FAERS Safety Report 12322771 (Version 1)
Quarter: 2016Q2

REPORT INFORMATION
  Report Type: Spontaneous
  Country: None (occurrence: None)
  Receive Date: 20160429
  Receipt Date: 20160429
  Transmission Date: 20160815
  Serious: No
  Sender: FDA-Public Use
  Company Number: None

PATIENT

DRUGS (2)
  1. CLOPIDOGREL [Suspect]
     Active Substance: CLOPIDOGREL BISULFATE
  2. DULOXETINE. [Suspect]
     Active Substance: DULOXETINE

REACTIONS (2)
  - Drug dispensing error [None]
  - Product packaging confusion [None]
